FAERS Safety Report 20942776 (Version 4)
Quarter: 2023Q2

REPORT INFORMATION
  Report Type: Spontaneous
  Country: US (occurrence: US)
  Receive Date: 20220610
  Receipt Date: 20230503
  Transmission Date: 20230722
  Serious: No
  Sender: FDA-Public Use
  Company Number: US-ALLERGAN-2214435US

PATIENT
  Age: 77 Year
  Sex: Female
  Weight: 56.245 kg

DRUGS (6)
  1. VIBERZI [Suspect]
     Active Substance: ELUXADOLINE
     Indication: Irritable bowel syndrome
     Dosage: 100 MG, BID
     Route: 048
     Dates: start: 20220414
  2. VIBERZI [Suspect]
     Active Substance: ELUXADOLINE
     Dosage: UNK
  3. VIBERZI [Suspect]
     Active Substance: ELUXADOLINE
     Indication: Irritable bowel syndrome
     Dosage: 75 MG
     Dates: start: 202202, end: 202204
  4. BUSPAR [Concomitant]
     Active Substance: BUSPIRONE HYDROCHLORIDE
     Indication: Product used for unknown indication
     Dosage: 15 MG, PRN
     Route: 048
  5. NORVASC [Concomitant]
     Active Substance: AMLODIPINE BESYLATE
     Indication: Product used for unknown indication
     Dosage: 10 MG, QAM
  6. LOTENSIN [Concomitant]
     Active Substance: BENAZEPRIL HYDROCHLORIDE
     Indication: Product used for unknown indication
     Dosage: 40 MG, QAM

REACTIONS (10)
  - Pain [Unknown]
  - Asthenia [Unknown]
  - Dehydration [Unknown]
  - Weight decreased [Unknown]
  - Alopecia [Unknown]
  - Malnutrition [Unknown]
  - Flatulence [Unknown]
  - Diarrhoea [Unknown]
  - Therapeutic response decreased [Unknown]
  - Abdominal distension [Unknown]

NARRATIVE: CASE EVENT DATE: 20220201
